FAERS Safety Report 13932065 (Version 6)
Quarter: 2019Q2

REPORT INFORMATION
  Report Type: Spontaneous
  Country: US (occurrence: US)
  Receive Date: 20170904
  Receipt Date: 20190429
  Transmission Date: 20190711
  Serious: Yes (Other)
  Sender: FDA-Public Use
  Company Number: US-PFIZER INC-2017004620

PATIENT
  Age: 41 Year
  Sex: Female
  Weight: 50 kg

DRUGS (7)
  1. LYRICA [Suspect]
     Active Substance: PREGABALIN
     Indication: FIBROMYALGIA
     Dosage: 750 MG, DAILY (150MG PILLS 5 TIMES A DAY/ 750 MG ALL TOGETHER, 150MG  - 3 PO Q AM ,  2 PO Q PM)
     Route: 048
     Dates: start: 201705, end: 20170826
  2. LYRICA [Suspect]
     Active Substance: PREGABALIN
     Indication: INTERVERTEBRAL DISC DEGENERATION
     Dosage: 750 MG, DAILY (150MG 5 X A DAY, 150MG  - 3 PO Q AM ,  2 PO Q PM)
     Route: 048
  3. LYRICA [Suspect]
     Active Substance: PREGABALIN
     Indication: ARTHRITIS
  4. LYRICA [Suspect]
     Active Substance: PREGABALIN
     Indication: TENDONITIS
  5. LYRICA [Suspect]
     Active Substance: PREGABALIN
     Indication: PAIN
  6. LYRICA [Suspect]
     Active Substance: PREGABALIN
     Indication: IRRITABLE BOWEL SYNDROME
  7. LYRICA [Suspect]
     Active Substance: PREGABALIN
     Indication: MIGRAINE

REACTIONS (4)
  - Overdose [Unknown]
  - Drug ineffective [Unknown]
  - Foot fracture [Recovering/Resolving]
  - Balance disorder [Unknown]

NARRATIVE: CASE EVENT DATE: 201705
